FAERS Safety Report 6752195-2 (Version None)
Quarter: 2010Q2

REPORT INFORMATION
  Report Type: 
  Country: None (occurrence: None)
  Receive Date: 20100601
  Receipt Date: 20100601
  Transmission Date: 20101027
  Serious: No
  Sender: FDA-Public Use
  Company Number: None

PATIENT

DRUGS (1)
  1. ALLI [Suspect]

REACTIONS (11)
  - ACTIVITIES OF DAILY LIVING IMPAIRED [None]
  - CHROMATURIA [None]
  - DYSKINESIA [None]
  - DYSPNOEA [None]
  - FAECES PALE [None]
  - FORMICATION [None]
  - HEPATIC STEATOSIS [None]
  - PRODUCT QUALITY ISSUE [None]
  - RESTLESSNESS [None]
  - TARDIVE DYSKINESIA [None]
  - TREMOR [None]
